FAERS Safety Report 9592996 (Version 1)
Quarter: 2013Q4

REPORT INFORMATION
  Report Type: Spontaneous
  Country: US (occurrence: US)
  Receive Date: 20131004
  Receipt Date: 20131004
  Transmission Date: 20140711
  Serious: Yes (Hospitalization)
  Sender: FDA-Public Use
  Company Number: US-SUN PHARMACEUTICAL INDUSTRIES LTD-2013SUN04794

PATIENT
  Age: 47 Year
  Sex: Female

DRUGS (6)
  1. CLOZAPINE 100 MG TABLETS [Suspect]
     Indication: PRODUCT USED FOR UNKNOWN INDICATION
     Dosage: 100 MG, NIGHTLY
  2. CITALOPRAM HBR TABS 10MG [Suspect]
     Indication: PRODUCT USED FOR UNKNOWN INDICATION
     Dosage: 10 MG, DAILY
  3. ONDANSETRON [Concomitant]
  4. PROMETHAZINE [Concomitant]
  5. METOCLOPRAMIDE [Concomitant]
  6. CYPROHEPTADINE [Concomitant]

REACTIONS (1)
  - Serotonin syndrome [Recovered/Resolved]
